FAERS Safety Report 5668300-5 (Version None)
Quarter: 2008Q1

REPORT INFORMATION
  Report Type: 
  Country: None (occurrence: None)
  Receive Date: 20080315
  Receipt Date: 20080219
  Transmission Date: 20080703
  Serious: No
  Sender: FDA-Public Use
  Company Number: US-ABBOTT-08P-163-0439156-00

PATIENT
  Sex: Female
  Weight: 93.07 kg

DRUGS (5)
  1. HUMIRA [Suspect]
     Indication: RHEUMATOID ARTHRITIS
     Route: 058
     Dates: start: 20060101
  2. METHOTREXATE [Concomitant]
     Indication: ARTHRITIS
     Dosage: 2.5 MG TABLETS 8 TABLETS /ONCE A WEEK
     Route: 048
     Dates: start: 20070101
  3. CELECOXIB [Concomitant]
     Indication: ARTHRITIS
     Route: 048
     Dates: start: 20060101
  4. TRAMADOL HCL [Concomitant]
     Indication: PAIN
     Dosage: 50 MG 1-2 TABLETS EVERY 4-6 HOURS AS NEEDED
     Route: 048
     Dates: start: 20060101
  5. LEFLUNOMIDE [Concomitant]
     Indication: ARTHRITIS
     Route: 048
     Dates: start: 20071101

REACTIONS (3)
  - ABDOMINAL PAIN UPPER [None]
  - DIARRHOEA [None]
  - VOMITING [None]
